FAERS Safety Report 15424052 (Version 7)
Quarter: 2019Q2

REPORT INFORMATION
  Report Type: Report from Study
  Country: JP (occurrence: JP)
  Receive Date: 20180925
  Receipt Date: 20190520
  Transmission Date: 20190711
  Serious: Yes (Life-Threatening, Other)
  Sender: FDA-Public Use
  Company Number: JP-GLAXOSMITHKLINE-JP2018JPN170319

PATIENT
  Age: 5 Decade
  Sex: Male
  Weight: 81 kg

DRUGS (49)
  1. PREDONINE [Suspect]
     Active Substance: PREDNISOLONE
     Dosage: 55 MG, 1D
     Route: 048
     Dates: start: 20180726, end: 20180801
  2. PREDONINE [Suspect]
     Active Substance: PREDNISOLONE
     Dosage: 50 MG, 1D
     Route: 048
     Dates: start: 20180802, end: 20180808
  3. PLAQUENIL [Concomitant]
     Active Substance: HYDROXYCHLOROQUINE SULFATE
     Indication: SYSTEMIC LUPUS ERYTHEMATOSUS
     Dosage: UNK
  4. GASMOTIN [Concomitant]
     Active Substance: MOSAPRIDE CITRATE
     Dosage: UNK
  5. FAMOTIDINE. [Concomitant]
     Active Substance: FAMOTIDINE
     Indication: PROPHYLAXIS AGAINST GASTROINTESTINAL ULCER
     Dosage: UNK
  6. BONALON [Concomitant]
     Active Substance: ALENDRONATE SODIUM
     Indication: OSTEOPOROSIS PROPHYLAXIS
     Dosage: UNK
  7. GLUFAST [Concomitant]
     Active Substance: MITIGLINIDE
     Dosage: UNK
  8. BELIMUMAB [Suspect]
     Active Substance: BELIMUMAB
     Indication: SYSTEMIC LUPUS ERYTHEMATOSUS
     Dosage: 10 MG/KG, EVERY TWO WEEKS
     Route: 041
     Dates: start: 20180326, end: 20180423
  9. PREDONINE [Suspect]
     Active Substance: PREDNISOLONE
     Dosage: 60 MG, 1D
     Route: 048
     Dates: start: 20180506, end: 20180521
  10. PREDONINE [Suspect]
     Active Substance: PREDNISOLONE
     Dosage: 60 MG, 1D
     Route: 048
     Dates: start: 20180708, end: 20180725
  11. PREDONINE [Suspect]
     Active Substance: PREDNISOLONE
     Dosage: 30 MG, 1D
     Route: 048
     Dates: start: 20180830, end: 20180926
  12. TACROLIMUS HYDRATE [Suspect]
     Active Substance: TACROLIMUS
     Indication: SYSTEMIC LUPUS ERYTHEMATOSUS
     Dosage: 3 MG, 1D
     Route: 065
  13. NIFELANTERN CR [Concomitant]
     Active Substance: NIFEDIPINE
     Dosage: UNK
  14. BIO-THREE [Concomitant]
     Active Substance: HERBALS
     Indication: PROPHYLAXIS
     Dosage: UNK
  15. SOLU-MEDROL [Concomitant]
     Active Substance: METHYLPREDNISOLONE SODIUM SUCCINATE
     Indication: SYSTEMIC LUPUS ERYTHEMATOSUS
     Dosage: 1000 MG, 1D
     Dates: start: 20180322, end: 20180324
  16. SAMTIREL [Concomitant]
     Active Substance: ATOVAQUONE
     Indication: ANTIFUNGAL PROPHYLAXIS
     Dosage: UNK
  17. TERAMURO COMBINATION TABLETS [Concomitant]
     Dosage: UNK
  18. BELIMUMAB [Suspect]
     Active Substance: BELIMUMAB
     Dosage: 10 MG/KG, EVERY FOUR WEEKS
     Route: 041
     Dates: start: 20180521, end: 20190305
  19. PREDONINE [Suspect]
     Active Substance: PREDNISOLONE
     Dosage: 60 MG, 1D
     Route: 048
     Dates: start: 20180401, end: 20180502
  20. PREDONINE [Suspect]
     Active Substance: PREDNISOLONE
     Dosage: 40 MG, 1D
     Route: 048
     Dates: start: 20180816, end: 20180822
  21. PREDONINE [Suspect]
     Active Substance: PREDNISOLONE
     Dosage: 20 MG, 1D
     Route: 048
     Dates: start: 20181025, end: 20181128
  22. PREDONINE [Suspect]
     Active Substance: PREDNISOLONE
     Dosage: 12.5 MG, 1D
     Route: 048
     Dates: start: 20190305
  23. SOLU-MEDROL [Concomitant]
     Active Substance: METHYLPREDNISOLONE SODIUM SUCCINATE
     Dosage: 1000 MG, 1D
     Dates: start: 20180329, end: 20180331
  24. SOLU-MEDROL [Concomitant]
     Active Substance: METHYLPREDNISOLONE SODIUM SUCCINATE
     Dosage: 1000 MG, 1D
     Dates: start: 20180522, end: 20180524
  25. MICARDIS [Concomitant]
     Active Substance: TELMISARTAN
     Dosage: UNK
  26. PITAVASTATIN CALCIUM [Concomitant]
     Active Substance: PITAVASTATIN CALCIUM
     Dosage: UNK
  27. AZOSEMIDE [Concomitant]
     Active Substance: AZOSEMIDE
     Dosage: UNK
  28. TRANSAMIN [Concomitant]
     Active Substance: TRANEXAMIC ACID
     Indication: HAEMORRHAGE PROPHYLAXIS
     Dosage: UNK
  29. PREDONINE [Suspect]
     Active Substance: PREDNISOLONE
     Dosage: 25 MG, 1D
     Route: 048
     Dates: start: 20180927, end: 20181024
  30. CELLCEPT [Suspect]
     Active Substance: MYCOPHENOLATE MOFETIL\MYCOPHENOLATE MOFETIL HYDROCHLORIDE
     Indication: SYSTEMIC LUPUS ERYTHEMATOSUS
     Dosage: 2000 MG, 1D
     Route: 048
  31. LOTRIGA [Concomitant]
     Active Substance: OMEGA-3-ACID ETHYL ESTERS
     Dosage: UNK
  32. TRAZENTA [Concomitant]
     Active Substance: LINAGLIPTIN
     Dosage: UNK
  33. ZETIA [Concomitant]
     Active Substance: EZETIMIBE
     Dosage: UNK
  34. FEXOFENADINE HYDROCHLORIDE. [Concomitant]
     Active Substance: FEXOFENADINE HYDROCHLORIDE
     Dosage: UNK
  35. PREDONINE [Suspect]
     Active Substance: PREDNISOLONE
     Indication: SYSTEMIC LUPUS ERYTHEMATOSUS
     Dosage: 60 MG, 1D
     Route: 048
     Dates: start: 20180325, end: 20180328
  36. PREDONINE [Suspect]
     Active Substance: PREDNISOLONE
     Dosage: 35 MG, 1D
     Route: 048
     Dates: start: 20180823, end: 20180829
  37. DAIKENCHUTO [Concomitant]
     Active Substance: HERBALS
     Dosage: UNK
  38. FUROSEMIDE. [Concomitant]
     Active Substance: FUROSEMIDE
     Dosage: UNK
  39. TAKECAB [Concomitant]
     Active Substance: VONOPRAZAN FUMURATE
     Indication: PROPHYLAXIS AGAINST GASTROINTESTINAL ULCER
     Dosage: UNK
  40. DENOSINE (JAPAN) [Concomitant]
     Active Substance: GANCICLOVIR
     Indication: CYTOMEGALOVIRUS INFECTION
     Dosage: UNK
  41. PREDONINE [Suspect]
     Active Substance: PREDNISOLONE
     Dosage: 60 MG, 1D
     Route: 048
     Dates: start: 20180525, end: 20180704
  42. PREDONINE [Suspect]
     Active Substance: PREDNISOLONE
     Dosage: 17.5 MG, 1D
     Route: 048
     Dates: start: 20181129, end: 20190107
  43. DAIPHEN [Suspect]
     Active Substance: SULFAMETHOXAZOLE\TRIMETHOPRIM
     Indication: ANTIFUNGAL PROPHYLAXIS
     Dosage: UNK
     Route: 048
  44. SOLU-MEDROL [Concomitant]
     Active Substance: METHYLPREDNISOLONE SODIUM SUCCINATE
     Dosage: 1000 MG, 1D
     Dates: start: 20180503, end: 20180505
  45. SOLU-MEDROL [Concomitant]
     Active Substance: METHYLPREDNISOLONE SODIUM SUCCINATE
     Dosage: 1000 MG, 1D
     Dates: start: 20180705, end: 20180707
  46. PREDONINE [Suspect]
     Active Substance: PREDNISOLONE
     Dosage: 45 MG, 1D
     Route: 048
     Dates: start: 20180809, end: 20180815
  47. PREDONINE [Suspect]
     Active Substance: PREDNISOLONE
     Dosage: 15 MG, 1D
     Route: 048
     Dates: start: 20190108, end: 20190304
  48. ROSUVASTATIN CALCIUM. [Concomitant]
     Active Substance: ROSUVASTATIN CALCIUM
     Dosage: UNK
  49. TAZIN (JAPAN) [Concomitant]
     Indication: HAEMORRHAGE PROPHYLAXIS
     Dosage: UNK

REACTIONS (4)
  - Venous thrombosis limb [Not Recovered/Not Resolved]
  - Hepatic function abnormal [Recovered/Resolved]
  - Hypokalaemia [Recovered/Resolved]
  - Pulmonary nocardiosis [Recovering/Resolving]

NARRATIVE: CASE EVENT DATE: 20180327
